FAERS Safety Report 5520918-6 (Version None)
Quarter: 2007Q4

REPORT INFORMATION
  Report Type: 
  Country: None (occurrence: None)
  Receive Date: 20071116
  Receipt Date: 20071116
  Transmission Date: 20080405
  Serious: Yes (Hospitalization)
  Sender: FDA-Public Use
  Company Number: None

PATIENT
  Age: 34 Year
  Sex: Female
  Weight: 79.8331 kg

DRUGS (1)
  1. AVELOX [Suspect]
     Dosage: 400 MG DAILY PO
     Route: 048
     Dates: start: 20071103, end: 20071104

REACTIONS (2)
  - CONJUNCTIVITIS [None]
  - STEVENS-JOHNSON SYNDROME [None]
